FAERS Safety Report 4944155-9 (Version None)
Quarter: 2006Q1

REPORT INFORMATION
  Report Type: 
  Country: None (occurrence: None)
  Receive Date: 20060310
  Receipt Date: 20060302
  Transmission Date: 20060701
  Serious: Yes (Life-Threatening, Hospitalization)
  Sender: FDA-Public Use
  Company Number: 220130

PATIENT
  Age: 63 Year
  Sex: Female
  Weight: 163 kg

DRUGS (4)
  1. AVASTIN [Suspect]
     Indication: LUNG NEOPLASM MALIGNANT
     Dosage: 375 MG, Q3W, INTRAVENOUS
     Route: 042
     Dates: start: 20051123, end: 20051123
  2. PACLITAXEL [Concomitant]
  3. CARBOPLATIN [Concomitant]
  4. BETA BLOCKERS NOS (BETA BLOCKERS NOS) [Concomitant]

REACTIONS (7)
  - BLOOD PRESSURE IMMEASURABLE [None]
  - BRADYCARDIA [None]
  - CONDUCTION DISORDER [None]
  - CONVULSION [None]
  - DEPRESSED LEVEL OF CONSCIOUSNESS [None]
  - FLUSHING [None]
  - RESPIRATION ABNORMAL [None]
